FAERS Safety Report 16244816 (Version 4)
Quarter: 2019Q3

REPORT INFORMATION
  Report Type: Report from Study
  Country: JP (occurrence: JP)
  Receive Date: 20190426
  Receipt Date: 20190813
  Transmission Date: 20191004
  Serious: Yes (Hospitalization)
  Sender: FDA-Public Use
  Company Number: JP-ELI_LILLY_AND_COMPANY-JP201904010706

PATIENT
  Sex: Female

DRUGS (1)
  1. IXEKIZUMAB [Suspect]
     Active Substance: IXEKIZUMAB
     Indication: PUSTULAR PSORIASIS
     Dosage: UNK
     Route: 058
     Dates: start: 20181025

REACTIONS (5)
  - Erysipelas [Recovered/Resolved]
  - Cough [Not Recovered/Not Resolved]
  - Heat exhaustion [Unknown]
  - Nasopharyngitis [Recovered/Resolved]
  - Injection site pain [Unknown]

NARRATIVE: CASE EVENT DATE: 201904
